FAERS Safety Report 12364364 (Version 1)
Quarter: 2016Q2

REPORT INFORMATION
  Report Type: Report from Study
  Country: US (occurrence: US)
  Receive Date: 20160513
  Receipt Date: 20160513
  Transmission Date: 20160815
  Serious: No
  Sender: FDA-Public Use
  Company Number: ADR-2015-01412

PATIENT

DRUGS (19)
  1. DILAUDID [Suspect]
     Active Substance: HYDROMORPHONE HYDROCHLORIDE
     Dosage: 386.6 M CG/DAY
     Route: 037
     Dates: start: 20150427
  2. BUPIVACAINE. [Suspect]
     Active Substance: BUPIVACAINE
     Dosage: 9.278 MG/DAY
     Route: 037
     Dates: start: 20141028
  3. OXYCODONE [Concomitant]
     Active Substance: OXYCODONE
     Route: 065
  4. DILAUDID [Suspect]
     Active Substance: HYDROMORPHONE HYDROCHLORIDE
     Dosage: 292.4 MCG/DAY
     Route: 037
     Dates: start: 20140203, end: 20140428
  5. COMPOUNDED BACLOFEN [Suspect]
     Active Substance: BACLOFEN
     Dosage: 58.48 MCG/DAY
     Route: 037
     Dates: start: 20140203, end: 20140428
  6. COMPOUNDED BACLOFEN [Suspect]
     Active Substance: BACLOFEN
     Dosage: 15.463 MCG/DAY)
     Route: 037
     Dates: start: 20150427
  7. BUPIVACAINE. [Suspect]
     Active Substance: BUPIVACAINE
     Dosage: 9.278 MG/DAY
     Route: 037
     Dates: start: 20140730, end: 20141028
  8. DILAUDID [Suspect]
     Active Substance: HYDROMORPHONE HYDROCHLORIDE
     Dosage: 386.6 MCG/DAY
     Route: 037
     Dates: start: 20141028
  9. COMPOUNDED BACLOFEN [Suspect]
     Active Substance: BACLOFEN
     Dosage: 38.66 MCG/DAY
     Route: 037
     Dates: start: 20140730, end: 20141028
  10. DILAUDID [Suspect]
     Active Substance: HYDROMORPHONE HYDROCHLORIDE
     Dosage: 350.2 MCG/DAY
     Route: 037
     Dates: start: 20150723
  11. COMPOUNDED BACLOFEN [Suspect]
     Active Substance: BACLOFEN
     Dosage: 64.36 MCG/DAY
     Route: 037
     Dates: start: 20140428, end: 20140730
  12. BUPIVACAINE. [Suspect]
     Active Substance: BUPIVACAINE
     Dosage: 7.723 MG/DAY
     Route: 037
     Dates: start: 20140428, end: 20140730
  13. DILAUDID [Suspect]
     Active Substance: HYDROMORPHONE HYDROCHLORIDE
     Dosage: 386.6 MCG/DAY
     Route: 037
     Dates: start: 20140730, end: 20141028
  14. COMPOUNDED BACLOFEN [Suspect]
     Active Substance: BACLOFEN
     Dosage: 15.463 MCG/DAY
     Route: 037
     Dates: start: 20141028
  15. COMPOUNDED BACLOFEN [Suspect]
     Active Substance: BACLOFEN
     Dosage: 006 MCG/DAY
     Route: 037
     Dates: start: 20150723
  16. BUPIVACAINE. [Suspect]
     Active Substance: BUPIVACAINE
     Dosage: 9.278 MG/DAY
     Route: 037
     Dates: start: 20150427
  17. BUPIVACAINE. [Suspect]
     Active Substance: BUPIVACAINE
     Dosage: 7.017 MG/DAY
     Route: 037
     Dates: start: 20140206, end: 20140428
  18. BUPIVACAINE. [Suspect]
     Active Substance: BUPIVACAINE
     Dosage: 8.404 MG/DAY
     Route: 037
     Dates: start: 20150723
  19. DILAUDID [Suspect]
     Active Substance: HYDROMORPHONE HYDROCHLORIDE
     Dosage: 321.8 MCG/DAY
     Route: 037
     Dates: start: 20140428, end: 20140730

REACTIONS (2)
  - Sedation [Recovered/Resolved]
  - Sedation [Recovered/Resolved]

NARRATIVE: CASE EVENT DATE: 20140721
